FAERS Safety Report 8230530-6 (Version None)
Quarter: 2012Q1

REPORT INFORMATION
  Report Type: 
  Country: None (occurrence: None)
  Receive Date: 20120322
  Receipt Date: 20120322
  Transmission Date: 20120608
  Serious: Yes (Hospitalization)
  Sender: FDA-Public Use
  Company Number: None

PATIENT
  Age: 62 Year
  Sex: Male
  Weight: 94.9 kg

DRUGS (9)
  1. STANDARD OF CARE ANESTHESIA [Concomitant]
  2. TYLENOL [Concomitant]
  3. ZOFRAN [Concomitant]
  4. DECADRON [Concomitant]
  5. TEMOZOLOMIDE [Suspect]
     Indication: MALIGNANT MELANOMA
     Dosage: 1406 MG/ILI
     Dates: start: 20120315
  6. NARCAN [Concomitant]
  7. ANCEF [Concomitant]
  8. PHENEGRAN [Concomitant]
  9. LAXATIVES [Concomitant]

REACTIONS (3)
  - COMPARTMENT SYNDROME [None]
  - BLOOD CREATINE PHOSPHOKINASE INCREASED [None]
  - INFLUENZA LIKE ILLNESS [None]
